FAERS Safety Report 12742844 (Version 2)
Quarter: 2016Q3

REPORT INFORMATION
  Report Type: Spontaneous
  Country: BR (occurrence: BR)
  Receive Date: 20160914
  Receipt Date: 20160921
  Transmission Date: 20161109
  Serious: Yes (Hospitalization, Other)
  Sender: FDA-Public Use
  Company Number: BR-JNJFOC-20160909042

PATIENT
  Age: 67 Year
  Sex: Male

DRUGS (2)
  1. REMICADE [Suspect]
     Active Substance: INFLIXIMAB
     Indication: CROHN^S DISEASE
     Route: 042
  2. AZATHIOPRINE. [Suspect]
     Active Substance: AZATHIOPRINE
     Indication: CROHN^S DISEASE
     Route: 065

REACTIONS (11)
  - Diverticulum [Unknown]
  - Gastrointestinal infection [Unknown]
  - Anaemia [Recovered/Resolved]
  - Pancytopenia [Unknown]
  - Dyspnoea [Unknown]
  - Lymphadenopathy [Unknown]
  - Crohn^s disease [Not Recovered/Not Resolved]
  - Haematocrit increased [Not Recovered/Not Resolved]
  - Thrombocytosis [Recovered/Resolved]
  - Febrile neutropenia [Unknown]
  - Emphysema [Unknown]

NARRATIVE: CASE EVENT DATE: 201409
